FAERS Safety Report 18044722 (Version 2)
Quarter: 2020Q3

REPORT INFORMATION
  Report Type: Report from Study
  Country: US (occurrence: US)
  Receive Date: 20200720
  Receipt Date: 20200808
  Transmission Date: 20201103
  Serious: Yes (Life-Threatening, Hospitalization, Other)
  Sender: FDA-Public Use
  Company Number: US-AMGEN-USACT2020115441

PATIENT
  Age: 9 Year
  Sex: Male
  Weight: 83.3 kg

DRUGS (30)
  1. BLINATUMOMAB [Suspect]
     Active Substance: BLINATUMOMAB
     Indication: B PRECURSOR TYPE ACUTE LEUKAEMIA
     Dosage: 26 MICROGRAM, QD
     Route: 042
     Dates: start: 20191213, end: 20200206
  2. CYCLOPHOSPHAMIDE. [Suspect]
     Active Substance: CYCLOPHOSPHAMIDE
     Indication: B PRECURSOR TYPE ACUTE LEUKAEMIA
     Dosage: 1730 MILLIGRAM
     Route: 065
     Dates: start: 20191104
  3. CYCLOPHOSPHAMIDE. [Suspect]
     Active Substance: CYCLOPHOSPHAMIDE
     Dosage: 1750 MILLIGRAM
     Route: 065
     Dates: end: 20191231
  4. MERCAPTOPURINE. [Suspect]
     Active Substance: MERCAPTOPURINE
     Indication: B PRECURSOR TYPE ACUTE LEUKAEMIA
     Dosage: 104 MILLIGRAM X 28
     Route: 065
     Dates: start: 20191104, end: 20191231
  5. VINCRISTINE [Suspect]
     Active Substance: VINCRISTINE
     Dosage: 2 MILLIGRAM X 3
     Route: 065
     Dates: start: 20200604
  6. METHOTREXATE. [Suspect]
     Active Substance: METHOTREXATE
     Indication: B PRECURSOR TYPE ACUTE LEUKAEMIA
     Dosage: 12 MILLIGRAM X 2
     Route: 037
     Dates: start: 20191001, end: 20191104
  7. METHOTREXATE. [Suspect]
     Active Substance: METHOTREXATE
     Dosage: 9150 MILLIGRAM
     Route: 065
     Dates: end: 20200430
  8. DEXAMETHASONE. [Suspect]
     Active Substance: DEXAMETHASONE
     Indication: B PRECURSOR TYPE ACUTE LEUKAEMIA
     Dosage: 5.5 MILLIGRAM X 56
     Route: 065
     Dates: start: 20191001, end: 20191104
  9. METHOTREXATE. [Suspect]
     Active Substance: METHOTREXATE
     Dosage: 8900 MILLIGRAM
     Route: 065
  10. METHOTREXATE. [Suspect]
     Active Substance: METHOTREXATE
     Dosage: 9000 MILLIGRAM
     Route: 065
  11. METHOTREXATE. [Suspect]
     Active Substance: METHOTREXATE
     Dosage: 15 MILLIGRAM X 2
     Route: 037
     Dates: start: 20200206, end: 20200430
  12. BLINATUMOMAB [Suspect]
     Active Substance: BLINATUMOMAB
     Dosage: 28 MICROGRAM, QD
     Route: 042
     Dates: start: 20200430, end: 20200604
  13. PREDNISOLONE. [Suspect]
     Active Substance: PREDNISOLONE
     Indication: B PRECURSOR TYPE ACUTE LEUKAEMIA
     Route: 065
  14. DOXORUBICIN [Suspect]
     Active Substance: DOXORUBICIN
     Indication: B PRECURSOR TYPE ACUTE LEUKAEMIA
     Dosage: 48 MILLIGRAM X 3
     Route: 065
     Dates: start: 20200604
  15. DEXAMETHASONE. [Suspect]
     Active Substance: DEXAMETHASONE
     Dosage: 9.5 MILLIGRAM X 14
     Route: 065
     Dates: start: 20200604
  16. VINCRISTINE [Suspect]
     Active Substance: VINCRISTINE
     Dosage: 2 MILLIGRAM X 4
     Route: 065
     Dates: start: 20200206, end: 20200430
  17. THIOGUANINE [Suspect]
     Active Substance: THIOGUANINE
     Indication: B PRECURSOR TYPE ACUTE LEUKAEMIA
     Route: 065
  18. PEGASPARGASE [Suspect]
     Active Substance: PEGASPARGASE
     Indication: B PRECURSOR TYPE ACUTE LEUKAEMIA
     Dosage: 4477.5 INTERNATIONAL UNIT
     Route: 065
     Dates: start: 20191001, end: 20191104
  19. PEGASPARGASE [Suspect]
     Active Substance: PEGASPARGASE
     Dosage: 4424 INTERNATIONAL UNIT
     Route: 065
     Dates: start: 20191104
  20. METHOTREXATE. [Suspect]
     Active Substance: METHOTREXATE
     Dosage: 12 X 4
     Route: 037
     Dates: start: 20191104, end: 20191231
  21. MERCAPTOPURINE. [Suspect]
     Active Substance: MERCAPTOPURINE
     Dosage: 43.75 X 56
     Route: 065
     Dates: start: 20200206, end: 20200430
  22. ARA?C [Suspect]
     Active Substance: CYTARABINE
     Indication: B PRECURSOR TYPE ACUTE LEUKAEMIA
     Dosage: 70 MILLIGRAM
     Route: 065
     Dates: start: 20191001, end: 20191104
  23. ARA?C [Suspect]
     Active Substance: CYTARABINE
     Dosage: 130 X 16
     Route: 065
     Dates: start: 20191104, end: 20191231
  24. PEGASPARGASE [Suspect]
     Active Substance: PEGASPARGASE
     Dosage: 4327.5 INTERNATIONAL UNIT
     Route: 065
     Dates: end: 20191231
  25. PEGASPARGASE [Suspect]
     Active Substance: PEGASPARGASE
     Dosage: 4747.5 INTERNATIONAL UNIT X 1
     Route: 065
     Dates: start: 20200604
  26. VINCRISTINE [Suspect]
     Active Substance: VINCRISTINE
     Indication: B PRECURSOR TYPE ACUTE LEUKAEMIA
     Dosage: 2 MILLIGRAM X 4
     Route: 065
     Dates: start: 20191001, end: 20191104
  27. VINCRISTINE [Suspect]
     Active Substance: VINCRISTINE
     Dosage: 2 MILLIGRAM X 4
     Route: 065
     Dates: start: 20191104, end: 20191231
  28. METHOTREXATE. [Suspect]
     Active Substance: METHOTREXATE
     Dosage: 8750 MILLIGRAM
     Route: 065
     Dates: start: 20200206
  29. METHOTREXATE. [Suspect]
     Active Substance: METHOTREXATE
     Dosage: 15 MILLIGRAM X 1
     Route: 037
     Dates: start: 20200604
  30. LEUCOVORIN CALCIUM. [Suspect]
     Active Substance: LEUCOVORIN CALCIUM
     Indication: B PRECURSOR TYPE ACUTE LEUKAEMIA
     Dosage: 26.25 MILLIGRAM X 21
     Route: 065
     Dates: start: 20200206, end: 20200430

REACTIONS (7)
  - Respiratory failure [Not Recovered/Not Resolved]
  - Acute kidney injury [Not Recovered/Not Resolved]
  - Hypernatraemia [Recovered/Resolved]
  - Venoocclusive liver disease [Unknown]
  - Lipase increased [Recovered/Resolved]
  - Pancreatitis [Recovered/Resolved]
  - Blood bilirubin increased [Not Recovered/Not Resolved]

NARRATIVE: CASE EVENT DATE: 20200613
